FAERS Safety Report 19002088 (Version 1)
Quarter: 2021Q1

REPORT INFORMATION
  Report Type: Spontaneous
  Country: IN (occurrence: IN)
  Receive Date: 20210312
  Receipt Date: 20210312
  Transmission Date: 20210420
  Serious: No
  Sender: FDA-Public Use
  Company Number: IN-LUPIN LIMITED-2021-02912

PATIENT
  Age: 69 Year
  Sex: Male

DRUGS (9)
  1. SOFTOVAC?SF (HERBALS) [Suspect]
     Active Substance: HERBALS
     Indication: CONSTIPATION
     Dosage: UNK, SINCE LAST 3 YEARS
     Route: 048
  2. ESOZ?D [Concomitant]
     Indication: ANTACID THERAPY
     Dosage: 40 UNK
     Route: 065
  3. JARDIANCE MET [Concomitant]
     Active Substance: EMPAGLIFLOZIN\METFORMIN HYDROCHLORIDE
     Indication: DIABETES MELLITUS
     Dosage: 12.5 MILLIGRAM
     Route: 065
  4. SOFTOVAC?SF (HERBALS) [Suspect]
     Active Substance: HERBALS
     Dosage: UNK (SINCE LAST 4 TO 5 MONTHS)
     Route: 048
  5. A TO Z [Concomitant]
     Active Substance: MINERALS\VITAMINS
     Indication: SUPPLEMENTATION THERAPY
     Dosage: UNK
     Route: 065
  6. RECLIMET [Concomitant]
     Indication: DIABETES MELLITUS
     Dosage: UNK
     Route: 065
  7. PEGALUP ORAL SOLUT. 200 ML [Suspect]
     Active Substance: POLYETHYLENE GLYCOL 3350\POTASSIUM CHLORIDE\SODIUM BICARBONATE\SODIUM CHLORIDE
     Indication: CONSTIPATION
     Dosage: UNK
     Route: 048
     Dates: start: 20210225
  8. LONAZEP [Concomitant]
     Active Substance: CLONAZEPAM
     Indication: SLEEP DISORDER
     Dosage: 0.5 MILLIGRAM
     Route: 065
  9. URIMAX D [Concomitant]
     Indication: PROSTATIC DISORDER
     Dosage: UNK
     Route: 065

REACTIONS (1)
  - Drug ineffective [Unknown]
